FAERS Safety Report 8777301 (Version 1)
Quarter: 2012Q4

REPORT INFORMATION
  Report Type: 
  Country: US (occurrence: US)
  Receive Date: 20120910
  Receipt Date: 20120910
  Transmission Date: 20130627
  Serious: Yes (Disabling, Other)
  Sender: FDA-Public Use
  Company Number: US-ASTRAZENECA-2012SE47578

PATIENT
  Age: 51 Year
  Sex: Female

DRUGS (2)
  1. SYMBICORT PMDI [Suspect]
     Dosage: 160/4.5 MG FREQUENCY UNKNOWN
     Route: 055
  2. NEXIUM [Suspect]
     Route: 048

REACTIONS (6)
  - Condition aggravated [Unknown]
  - Pneumothorax [Unknown]
  - Lymphangioleiomyomatosis [Unknown]
  - Fatigue [Unknown]
  - Total lung capacity decreased [Unknown]
  - Dyspnoea [Unknown]
